FAERS Safety Report 5139649-X (Version None)
Quarter: 2006Q4

REPORT INFORMATION
  Report Type: 
  Country: None (occurrence: None)
  Receive Date: 20061024
  Receipt Date: 20061013
  Transmission Date: 20070319
  Serious: Yes (Hospitalization)
  Sender: FDA-Public Use
  Company Number: E3810-00349-CLI-JP

PATIENT
  Age: 79 Year
  Sex: Male
  Weight: 51 kg

DRUGS (5)
  1. RABEPRAZOLE SODIUM [Suspect]
     Indication: REFLUX OESOPHAGITIS
     Dosage: 10 MG, 1 IN 1 D, ORAL
     Route: 048
     Dates: start: 20040930, end: 20060216
  2. NORVASC [Concomitant]
  3. ASPIRIN [Concomitant]
  4. NAUZELIN        (DOMPERIDONE) [Concomitant]
  5. EPADEL S (ETHYL ICOSAPENTATE) [Concomitant]

REACTIONS (1)
  - HYPERGASTRINAEMIA [None]
